FAERS Safety Report 19808357 (Version 1)
Quarter: 2021Q3

REPORT INFORMATION
  Report Type: Spontaneous
  Country: DE (occurrence: DE)
  Receive Date: 20210909
  Receipt Date: 20210909
  Transmission Date: 20211014
  Serious: Yes (Hospitalization, Other)
  Sender: FDA-Public Use
  Company Number: DE-ADIENNEP-2021AD000464

PATIENT
  Age: 76 Year
  Sex: Male
  Weight: 65 kg

DRUGS (10)
  1. SULFAMETHOXAZOL/TRIMETHOPRIM [Concomitant]
     Active Substance: SULFAMETHOXAZOLE\TRIMETHOPRIM
     Dosage: 800/160 MG, NACH SCHEMA, TABLETTEN ()
     Route: 048
  2. THIOTEPA. [Suspect]
     Active Substance: THIOTEPA
     Dosage: NACH SCHEMA ()
  3. ACICLOVIR [Concomitant]
     Active Substance: ACYCLOVIR
     Dosage: 200 MG, 2?2?2?2, TABLETTEN
     Route: 048
  4. CYTARABIN [Suspect]
     Active Substance: CYTARABINE
     Dosage: NACH SCHEMA ()
  5. RITUXIMAB. [Suspect]
     Active Substance: RITUXIMAB
     Dosage: NACH SCHEMA ()
  6. PANTOPRAZOL [Concomitant]
     Active Substance: PANTOPRAZOLE SODIUM
     Dosage: 40 MG, 1?0?0?0, RETARD?TABLETTEN
     Route: 048
  7. LEVETIRACETAM. [Concomitant]
     Active Substance: LEVETIRACETAM
     Dosage: 1000 MG, 1?0?1?0, TABLETTEN
     Route: 048
  8. AMPHOTERICIN B. [Concomitant]
     Active Substance: AMPHOTERICIN B
     Dosage: 100 MG, 1?1?1?1, SUSPENSION
     Route: 048
  9. ENOXAPARIN [Concomitant]
     Active Substance: ENOXAPARIN
     Dosage: 6000 IE, 0?0?1?0, FERTIGSPRITZEN
     Route: 058
  10. PIPAMPERON [Concomitant]
     Active Substance: PIPAMPERONE HYDROCHLORIDE
     Dosage: 20 MG, 0?0?0?1, LOSUNG
     Route: 048

REACTIONS (2)
  - Leukopenia [Unknown]
  - Thrombocytopenia [Unknown]

NARRATIVE: CASE EVENT DATE: 202012
